FAERS Safety Report 14413151 (Version 2)
Quarter: 2018Q1

REPORT INFORMATION
  Report Type: Spontaneous
  Country: JP (occurrence: JP)
  Receive Date: 20180119
  Receipt Date: 20180206
  Transmission Date: 20180509
  Serious: Yes (Hospitalization, Other)
  Sender: FDA-Public Use
  Company Number: JP-SUCAMPO PHARMACEUTICALS INC.-SPI201800031

PATIENT
  Age: 82 Year
  Sex: Male

DRUGS (1)
  1. AMITIZA [Suspect]
     Active Substance: LUBIPROSTONE

REACTIONS (2)
  - Pneumonia [Unknown]
  - Inappropriate schedule of drug administration [Unknown]
